FAERS Safety Report 21708957 (Version 1)
Quarter: 2022Q4

REPORT INFORMATION
  Report Type: Report from Study
  Country: US (occurrence: US)
  Receive Date: 20221210
  Receipt Date: 20221210
  Transmission Date: 20230113
  Serious: No
  Sender: FDA-Public Use
  Company Number: US-ABBVIE-4230828

PATIENT
  Sex: Male

DRUGS (1)
  1. VENCLEXTA [Suspect]
     Active Substance: VENETOCLAX
     Indication: Chronic lymphocytic leukaemia
     Dosage: THE START DATE OF THE EVENTS WEAK AND TIRED WAS AN UNKNOWN DATE IN 2022.
     Route: 048
     Dates: start: 20221029

REACTIONS (2)
  - Fatigue [Unknown]
  - Asthenia [Unknown]
